FAERS Safety Report 4932203-1 (Version None)
Quarter: 2006Q1

REPORT INFORMATION
  Report Type: 
  Country: None (occurrence: None)
  Receive Date: 20060303
  Receipt Date: 20060221
  Transmission Date: 20060701
  Serious: Yes (Other)
  Sender: FDA-Public Use
  Company Number: PHBS2006BR02841

PATIENT
  Age: 65 Year
  Sex: Female
  Weight: 67 kg

DRUGS (4)
  1. DIOVAN [Suspect]
     Indication: HYPERTENSION
     Dosage: 80 MG, QD
     Route: 048
     Dates: start: 19960101, end: 20010101
  2. ANGIPRESS [Suspect]
     Indication: HYPERTENSION
     Dates: start: 19960101, end: 20010101
  3. APRESOLINE [Concomitant]
  4. HIGROTON [Concomitant]
     Dosage: 25 MG, UNK

REACTIONS (5)
  - ASTHMA [None]
  - BACK PAIN [None]
  - CHEST PAIN [None]
  - COUGH [None]
  - RHINITIS [None]
